FAERS Safety Report 7535855-5 (Version None)
Quarter: 2011Q2

REPORT INFORMATION
  Report Type: 
  Country: None (occurrence: None)
  Receive Date: 20110609
  Receipt Date: 20110608
  Transmission Date: 20111010
  Serious: Yes (Death)
  Sender: FDA-Public Use
  Company Number: JM-B.I. PHARMACEUTICALS,INC./RIDGEFIELD-2011-CN-00678CN

PATIENT
  Age: 89 Year
  Sex: Male

DRUGS (8)
  1. SERETIDE [Concomitant]
  2. WARFARIN SODIUM [Concomitant]
  3. NITROGLYCERIN 3 [Concomitant]
     Dosage: AS NEEDED
  4. FUROSEMIDE [Concomitant]
  5. SPIRIVA [Suspect]
     Indication: CHRONIC OBSTRUCTIVE PULMONARY DISEASE
     Dosage: 18 MCG
     Dates: start: 20060101
  6. RAMIPRIL [Concomitant]
  7. VENTOLIN HFA [Concomitant]
     Route: 055
  8. RANITIDINE [Concomitant]
     Dosage: TWICE A DAY

REACTIONS (1)
  - DEATH [None]
